FAERS Safety Report 7531587-8 (Version None)
Quarter: 2011Q2

REPORT INFORMATION
  Report Type: 
  Country: None (occurrence: None)
  Receive Date: 20110607
  Receipt Date: 20110607
  Transmission Date: 20111010
  Serious: Yes (Death, Hospitalization)
  Sender: FDA-Public Use
  Company Number: None

PATIENT
  Sex: Male
  Weight: 105 kg

DRUGS (2)
  1. CYTARABINE [Suspect]
     Dosage: 1505 MG
  2. DAUNORUBICIN HCL [Suspect]
     Dosage: 390 MG

REACTIONS (2)
  - MENTAL STATUS CHANGES [None]
  - DYSPNOEA [None]
